FAERS Safety Report 18054723 (Version 2)
Quarter: 2021Q2

REPORT INFORMATION
  Report Type: Spontaneous
  Country: US (occurrence: US)
  Receive Date: 20200722
  Receipt Date: 20210601
  Transmission Date: 20210717
  Serious: No
  Sender: FDA-Public Use
  Company Number: US-TEVA-2020-US-1795362

PATIENT
  Age: 56 Year
  Sex: Male

DRUGS (11)
  1. AUSTEDO [Suspect]
     Active Substance: DEUTETRABENAZINE
     Indication: TARDIVE DYSKINESIA
     Route: 048
     Dates: start: 202002
  2. AMANTADINE 100 MG CAPSULE [Concomitant]
  3. AUSTEDO [Suspect]
     Active Substance: DEUTETRABENAZINE
     Dosage: 24 MILLIGRAM DAILY;
     Route: 048
     Dates: start: 202002
  4. DEPAKOTE SPRINKLE 125 MG CAPSULE [Concomitant]
  5. NALTREXONE HCL 50 MG TABLET [Concomitant]
  6. LAMOTRIGINE 100 MG TABLET [Concomitant]
     Active Substance: LAMOTRIGINE
  7. DULOXETINE HCL 20 MG CAPSULE DR [Concomitant]
  8. IBU 400 MG TABLET [Concomitant]
  9. BUSPIRONE HCL 10 MG TABLET [Concomitant]
  10. TRAZODONE HCL 100 MG TABLET [Concomitant]
  11. PROPRANOLOL HCL 10 MG TABLET [Concomitant]

REACTIONS (6)
  - Arthralgia [Unknown]
  - Chest pain [Recovered/Resolved]
  - Pain in extremity [Unknown]
  - Muscle tightness [Unknown]
  - Joint stiffness [Unknown]
  - Feeling abnormal [Unknown]

NARRATIVE: CASE EVENT DATE: 2020
